FAERS Safety Report 5897413-8 (Version None)
Quarter: 2008Q3

REPORT INFORMATION
  Report Type: 
  Country: None (occurrence: None)
  Receive Date: 20080829
  Receipt Date: 20080623
  Transmission Date: 20090109
  Serious: No
  Sender: FDA-Public Use
  Company Number: US-1166573

PATIENT
  Sex: Female

DRUGS (3)
  1. NEVANAC [Suspect]
     Dosage: (OPHTHALMIC)
     Route: 047
  2. ECONOPRED PLUS SUSPENSION (ALCON LABORATORIES INC.) [Suspect]
     Dosage: (OPHTHALMIC)
     Route: 047
  3. VIGAMOX [Suspect]
     Dosage: (OPHTHALMIC)
     Route: 047

REACTIONS (1)
  - NAUSEA [None]
